FAERS Safety Report 25380041 (Version 1)
Quarter: 2025Q2

REPORT INFORMATION
  Report Type: Spontaneous
  Country: US (occurrence: US)
  Receive Date: 20250530
  Receipt Date: 20250530
  Transmission Date: 20250717
  Serious: Yes (Hospitalization)
  Sender: BAUSCH AND LOMB
  Company Number: US-BAUSCH-BL-2025-006752

PATIENT
  Age: 7 Decade
  Sex: Male
  Weight: 108.96 kg

DRUGS (2)
  1. APRISO [Suspect]
     Active Substance: MESALAMINE
     Indication: Product used for unknown indication
     Route: 065
  2. XELJANZ [Concomitant]
     Active Substance: TOFACITINIB CITRATE
     Route: 065

REACTIONS (3)
  - Colostomy [Unknown]
  - Tremor [Unknown]
  - Condition aggravated [Unknown]
